FAERS Safety Report 9845757 (Version 1)
Quarter: 2014Q1

REPORT INFORMATION
  Report Type: Spontaneous
  Country: US (occurrence: US)
  Receive Date: 20140127
  Receipt Date: 20140127
  Transmission Date: 20141002
  Serious: No
  Sender: FDA-Public Use
  Company Number: US-PFIZER INC-2014024634

PATIENT
  Age: 78 Year
  Sex: Female
  Weight: 105.67 kg

DRUGS (2)
  1. LYRICA [Suspect]
     Indication: FIBROMYALGIA
     Dosage: 75 MG, 2X/DAY
     Route: 048
     Dates: start: 2009
  2. LORTAB [Concomitant]
     Dosage: UNK

REACTIONS (1)
  - Withdrawal syndrome [Recovered/Resolved]
